FAERS Safety Report 4969271-7 (Version None)
Quarter: 2006Q2

REPORT INFORMATION
  Report Type: 
  Country: None (occurrence: None)
  Receive Date: 20060405
  Receipt Date: 20060323
  Transmission Date: 20061013
  Serious: Yes (Other)
  Sender: FDA-Public Use
  Company Number: 2006041137

PATIENT
  Age: 68 Year
  Sex: Male
  Weight: 88.4514 kg

DRUGS (4)
  1. VIAGRA [Suspect]
     Indication: ERECTILE DYSFUNCTION
     Dosage: 100 MG, ORAL
     Route: 048
     Dates: start: 20020101
  2. ALLOPURINOL [Concomitant]
  3. POTASSIUM (POTASSIUM) [Concomitant]
  4. INDAPAMIDE [Concomitant]

REACTIONS (1)
  - PROSTATE CANCER [None]
